FAERS Safety Report 21591037 (Version 1)
Quarter: 2022Q4

REPORT INFORMATION
  Report Type: Spontaneous
  Country: US (occurrence: None)
  Receive Date: 20221111
  Receipt Date: 20221111
  Transmission Date: 20230112
  Serious: Yes (Other)
  Sender: FDA-Public Use
  Company Number: None

PATIENT
  Sex: Female

DRUGS (1)
  1. IRON SUCROSE [Suspect]
     Active Substance: IRON SUCROSE
     Indication: Anaemia
     Route: 042

REACTIONS (2)
  - Pruritus [None]
  - Erythema [None]

NARRATIVE: CASE EVENT DATE: 20220820
